FAERS Safety Report 5609647-8 (Version None)
Quarter: 2008Q1

REPORT INFORMATION
  Report Type: 
  Country: None (occurrence: None)
  Receive Date: 20080131
  Receipt Date: 20080121
  Transmission Date: 20080703
  Serious: Yes (Disabling)
  Sender: FDA-Public Use
  Company Number: B0458424A

PATIENT
  Age: 74 Year
  Sex: Male

DRUGS (12)
  1. EPIVIR [Suspect]
     Indication: HIV INFECTION
     Dosage: 150MG TWICE PER DAY
     Route: 048
     Dates: start: 20030601, end: 20030922
  2. EPIVIR [Suspect]
     Dosage: 300MG PER DAY
     Route: 048
     Dates: start: 20050523, end: 20050725
  3. EPIVIR [Suspect]
     Dosage: 150MG PER DAY
     Route: 048
     Dates: start: 20051129
  4. EPIVIR [Suspect]
     Dosage: 150MG PER DAY
  5. VIREAD [Suspect]
     Indication: HIV INFECTION
     Dosage: 300MG PER DAY
     Route: 048
     Dates: start: 20050523, end: 20050725
  6. KALETRA [Suspect]
     Indication: HIV INFECTION
     Route: 048
     Dates: start: 20050523
  7. ZIAGEN [Concomitant]
     Indication: HIV INFECTION
     Dosage: 600MG PER DAY
     Route: 048
     Dates: start: 20051129
  8. NORVIR [Concomitant]
     Indication: HIV INFECTION
     Dosage: 100MG PER DAY
     Route: 048
     Dates: start: 20051129
  9. REYATAZ [Concomitant]
     Indication: HIV INFECTION
     Route: 048
     Dates: start: 20051129, end: 20060522
  10. BAKTAR [Concomitant]
     Indication: ANTIFUNGAL PROPHYLAXIS
     Route: 048
     Dates: start: 20050523, end: 20060331
  11. CYANOCOBALAMIN [Concomitant]
     Dosage: 1500MCG PER DAY
     Route: 065
     Dates: start: 20060401
  12. LIPITOR [Concomitant]
     Dosage: 5MG PER DAY
     Route: 048
     Dates: start: 20070123

REACTIONS (1)
  - RENAL IMPAIRMENT [None]
